FAERS Safety Report 8481169-9 (Version None)
Quarter: 2012Q2

REPORT INFORMATION
  Report Type: 
  Country: None (occurrence: None)
  Receive Date: 20120618
  Receipt Date: 20120613
  Transmission Date: 20120825
  Serious: Yes (Hospitalization, Other)
  Sender: FDA-Public Use
  Company Number: 2009-200466-NL

PATIENT
  Age: 19 Year
  Sex: Female
  Weight: 143.7903 kg

DRUGS (1)
  1. NUVARING [Suspect]
     Indication: CONTRACEPTION
     Dates: start: 20070601, end: 20071001

REACTIONS (37)
  - PARAESTHESIA [None]
  - CHLAMYDIA TEST POSITIVE [None]
  - SMEAR CERVIX ABNORMAL [None]
  - OVERDOSE [None]
  - PLEURAL EFFUSION [None]
  - SUICIDAL IDEATION [None]
  - PREGNANCY WITH CONTRACEPTIVE DEVICE [None]
  - KIDNEY INFECTION [None]
  - INTENTIONAL SELF-INJURY [None]
  - PSYCHOTIC DISORDER [None]
  - NAUSEA [None]
  - THYROID DISORDER [None]
  - TREATMENT NONCOMPLIANCE [None]
  - DEVICE EXPULSION [None]
  - ABDOMINAL PAIN [None]
  - VULVOVAGINAL PRURITUS [None]
  - SIMPLEX VIRUS TEST POSITIVE [None]
  - TIC [None]
  - SUBSTANCE USE [None]
  - WEIGHT INCREASED [None]
  - ABNORMAL BEHAVIOUR [None]
  - PSYCHOMOTOR HYPERACTIVITY [None]
  - PULMONARY EMBOLISM [None]
  - INTERNATIONAL NORMALISED RATIO DECREASED [None]
  - URINARY TRACT INFECTION [None]
  - MATERNAL EXPOSURE DURING PREGNANCY [None]
  - ROAD TRAFFIC ACCIDENT [None]
  - ANXIETY [None]
  - POOR PERSONAL HYGIENE [None]
  - CHEST PAIN [None]
  - INSOMNIA [None]
  - MAJOR DEPRESSION [None]
  - HALLUCINATION, AUDITORY [None]
  - HAEMATURIA [None]
  - PELVIC PAIN [None]
  - HAEMOPTYSIS [None]
  - FEAR [None]
